FAERS Safety Report 6653671-3 (Version None)
Quarter: 2010Q1

REPORT INFORMATION
  Report Type: 
  Country: None (occurrence: None)
  Receive Date: 20100326
  Receipt Date: 20100311
  Transmission Date: 20100710
  Serious: Yes (Other)
  Sender: FDA-Public Use
  Company Number: FR-GENENTECH-297332

PATIENT
  Sex: Female

DRUGS (2)
  1. XOLAIR [Suspect]
     Indication: ASTHMA
     Dosage: 300 MG, 1/MONTH
     Dates: start: 20080901
  2. XOLAIR [Suspect]
     Dosage: UNK
     Dates: start: 20091210

REACTIONS (2)
  - ASTHMA [None]
  - SKIN TEST POSITIVE [None]
